FAERS Safety Report 24738654 (Version 1)
Quarter: 2024Q4

REPORT INFORMATION
  Report Type: Spontaneous
  Country: US (occurrence: US)
  Receive Date: 20241216
  Receipt Date: 20241216
  Transmission Date: 20250114
  Serious: Yes (Other)
  Sender: ABBVIE
  Company Number: US-ABBVIE-6038098

PATIENT
  Age: 49 Year
  Sex: Female
  Weight: 72 kg

DRUGS (12)
  1. SYNTHROID [Suspect]
     Active Substance: LEVOTHYROXINE SODIUM
     Indication: Uterine leiomyoma
     Dosage: FIRST ADMIN DATE: SEP 2023.
     Route: 048
  2. UNISOM SLEEPTABS [Concomitant]
     Active Substance: DOXYLAMINE SUCCINATE
     Indication: Morning sickness
  3. FAMOTIDINE [Concomitant]
     Active Substance: FAMOTIDINE
     Indication: Gastrooesophageal reflux disease
     Dosage: 40 MG/5 ML
     Route: 048
     Dates: start: 20240731, end: 20240930
  4. METOPROLOL TARTRATE [Concomitant]
     Active Substance: METOPROLOL TARTRATE
     Indication: Hypertension
     Dosage: FREQUENCY: AS NEEDED
     Route: 048
     Dates: start: 20240502
  5. LEVOTHYROXINE SODIUM [Concomitant]
     Active Substance: LEVOTHYROXINE SODIUM
     Indication: Hypothyroidism
     Dosage: FREQUENCY: EVERY MORNING
     Route: 048
  6. ASPIRIN [Concomitant]
     Active Substance: ASPIRIN
     Indication: Prophylaxis
     Route: 048
     Dates: start: 202409
  7. VITAMINS [Concomitant]
     Active Substance: VITAMINS
     Indication: Vitamin supplementation
     Dosage: DOSAGE: 1 OTHER DOSE 1 UNIT
     Route: 048
     Dates: start: 202307
  8. VITAMIN D [Concomitant]
     Active Substance: VITAMIN D NOS
     Indication: Vitamin supplementation
     Dosage: DOSE 1 UNIT
     Route: 048
     Dates: start: 202307
  9. MAGNESIUM [Concomitant]
     Active Substance: MAGNESIUM
     Indication: Mineral supplementation
     Dosage: DOSE 1 UNIT
     Route: 048
     Dates: start: 202307
  10. IRON [Concomitant]
     Active Substance: IRON
     Indication: Mineral supplementation
     Dosage: DOSE 1 UNIT
     Route: 048
     Dates: start: 202307
  11. METOPROLOL [Concomitant]
     Active Substance: METOPROLOL
     Indication: Heart rate increased
     Dosage: EVERY 8 HRS PRN
     Route: 048
     Dates: start: 20240314
  12. FOLIC ACID [Concomitant]
     Active Substance: FOLIC ACID
     Indication: Product used for unknown indication

REACTIONS (6)
  - Gastrooesophageal reflux disease [Not Recovered/Not Resolved]
  - Maternal exposure during pregnancy [Unknown]
  - Live birth [Unknown]
  - Postural orthostatic tachycardia syndrome [Recovered/Resolved]
  - Fibroadenoma of breast [Unknown]
  - Hypothyroidism [Unknown]

NARRATIVE: CASE EVENT DATE: 20231212
